FAERS Safety Report 10143932 (Version 4)
Quarter: 2022Q1

REPORT INFORMATION
  Report Type: Spontaneous
  Country: HU (occurrence: HU)
  Receive Date: 20140430
  Receipt Date: 20220118
  Transmission Date: 20220424
  Serious: Yes (Hospitalization)
  Sender: FDA-Public Use
  Company Number: HU-ABBVIE-14P-076-1228482-00

PATIENT
  Age: 37 Year
  Sex: Male
  Weight: 64 kg

DRUGS (9)
  1. HUMIRA [Suspect]
     Active Substance: ADALIMUMAB
     Indication: Terminal ileitis
     Route: 058
     Dates: start: 20120817, end: 201402
  2. HUMIRA [Suspect]
     Active Substance: ADALIMUMAB
     Indication: Crohn^s disease
  3. IMURAN [Suspect]
     Active Substance: AZATHIOPRINE
     Indication: Terminal ileitis
     Route: 048
     Dates: start: 2012, end: 201403
  4. IMURAN [Suspect]
     Active Substance: AZATHIOPRINE
     Indication: Crohn^s disease
  5. IMURAN [Suspect]
     Active Substance: AZATHIOPRINE
     Indication: Immunisation reaction
  6. INFLIXIMAB [Suspect]
     Active Substance: INFLIXIMAB
     Indication: Crohn^s disease
     Route: 065
  7. INFLIXIMAB [Suspect]
     Active Substance: INFLIXIMAB
     Indication: Terminal ileitis
  8. ENTOCORT [Concomitant]
     Active Substance: BUDESONIDE
     Indication: Colitis
     Route: 054
     Dates: start: 201312
  9. ENTOCORT [Concomitant]
     Active Substance: BUDESONIDE
     Indication: Proctitis

REACTIONS (1)
  - Lymphomatoid papulosis [Recovered/Resolved]

NARRATIVE: CASE EVENT DATE: 20140128
